FAERS Safety Report 6090163-7 (Version None)
Quarter: 2009Q1

REPORT INFORMATION
  Report Type: 
  Country: None (occurrence: None)
  Receive Date: 20090224
  Receipt Date: 20081205
  Transmission Date: 20090719
  Serious: No
  Sender: FDA-Public Use
  Company Number: US-ABBOTT-08P-163-0491594-00

PATIENT
  Sex: Female

DRUGS (8)
  1. SIMCOR [Suspect]
     Indication: DRUG USE FOR UNKNOWN INDICATION
     Dosage: 500/20 MG
     Dates: start: 20081123
  2. JANUVIA [Suspect]
     Indication: DRUG USE FOR UNKNOWN INDICATION
     Dates: start: 20081123
  3. JANUVIA [Concomitant]
  4. DARVOCET [Concomitant]
     Indication: DRUG USE FOR UNKNOWN INDICATION
  5. ZIAC [Concomitant]
     Indication: DRUG USE FOR UNKNOWN INDICATION
  6. METFORMIN [Concomitant]
     Indication: DRUG USE FOR UNKNOWN INDICATION
  7. INHALER [Concomitant]
     Indication: DRUG USE FOR UNKNOWN INDICATION
  8. ASPIRIN [Concomitant]
     Indication: DRUG USE FOR UNKNOWN INDICATION
     Dosage: 2 TABS

REACTIONS (5)
  - BLOOD GLUCOSE INCREASED [None]
  - FLUSHING [None]
  - HEADACHE [None]
  - PRURITUS [None]
  - UPPER RESPIRATORY TRACT INFECTION [None]
